FAERS Safety Report 20348640 (Version 1)
Quarter: 2022Q1

REPORT INFORMATION
  Report Type: Spontaneous
  Country: US (occurrence: None)
  Receive Date: 20220119
  Receipt Date: 20220119
  Transmission Date: 20220424
  Serious: No
  Sender: FDA-Public Use
  Company Number: US-MDD US Operations-SUP202110-002075

PATIENT
  Age: 9 Year
  Sex: Male
  Weight: 68 kg

DRUGS (2)
  1. QELBREE [Suspect]
     Active Substance: VILOXAZINE HYDROCHLORIDE
     Indication: Anxiety
     Dosage: NOT PROVIDED
     Dates: start: 202109
  2. QELBREE [Suspect]
     Active Substance: VILOXAZINE HYDROCHLORIDE
     Indication: Anger

REACTIONS (4)
  - Depression [Unknown]
  - Decreased appetite [Unknown]
  - Depressed mood [Unknown]
  - Product use in unapproved indication [Unknown]

NARRATIVE: CASE EVENT DATE: 20210101
